FAERS Safety Report 8961197 (Version 1)
Quarter: 2012Q4

REPORT INFORMATION
  Report Type: 
  Country: DK (occurrence: DK)
  Receive Date: 20121212
  Receipt Date: 20121212
  Transmission Date: 20130627
  Serious: Yes (Other)
  Sender: FDA-Public Use
  Company Number: DK-GLAXOSMITHKLINE-B0850727A

PATIENT
  Sex: Female

DRUGS (1)
  1. DERMOVAT [Suspect]
     Indication: LICHEN SCLEROSUS
     Route: 065
     Dates: start: 2010

REACTIONS (5)
  - Cushing^s syndrome [Not Recovered/Not Resolved]
  - Lipohypertrophy [Not Recovered/Not Resolved]
  - Arthralgia [Not Recovered/Not Resolved]
  - Skin discolouration [Recovering/Resolving]
  - Hair growth abnormal [Not Recovered/Not Resolved]
